FAERS Safety Report 5078855-X (Version None)
Quarter: 2006Q3

REPORT INFORMATION
  Report Type: 
  Country: None (occurrence: None)
  Receive Date: 20060809
  Receipt Date: 20060719
  Transmission Date: 20061208
  Serious: Yes (Other)
  Sender: FDA-Public Use
  Company Number: 006994

PATIENT
  Age: 72 Year
  Sex: Female
  Weight: 68.5 kg

DRUGS (8)
  1. WARFARIN SODIUM [Suspect]
     Indication: ATRIAL FIBRILLATION
     Dosage: 0.5 TABLET, QD, ORAL
     Route: 048
     Dates: start: 20040101, end: 20060303
  2. WARFARIN SODIUM [Suspect]
     Indication: ATRIAL FIBRILLATION
     Dosage: 0.5 TABLET, QD, ORAL
     Route: 048
     Dates: start: 20060316
  3. POTASSIUM (POTASSIUM) [Concomitant]
  4. FUROSEMIDE [Concomitant]
  5. MAGNESIUM OXIDE (MAGNESIUM OXIDE) [Concomitant]
  6. IMMUNGLOBULIN ^ALPHA^ (IMMUNOGLOBULIN HUMAN NORMAL) [Concomitant]
  7. TYLENOL PM      (DIPHENHYDRAMINE) [Concomitant]
  8. TYLENOL-500 [Concomitant]

REACTIONS (8)
  - ABDOMINAL PAIN [None]
  - ABDOMINAL PAIN LOWER [None]
  - ARTHRALGIA [None]
  - INSOMNIA [None]
  - PERIPHERAL COLDNESS [None]
  - RASH [None]
  - RENAL CELL CARCINOMA STAGE UNSPECIFIED [None]
  - RESTLESSNESS [None]
